FAERS Safety Report 15600663 (Version 2)
Quarter: 2018Q4

REPORT INFORMATION
  Report Type: Spontaneous
  Country: US (occurrence: US)
  Receive Date: 20181109
  Receipt Date: 20181109
  Transmission Date: 20190205
  Serious: Yes (Hospitalization, Other)
  Sender: FDA-Public Use
  Company Number: US-SHIRE-US201843042

PATIENT
  Sex: Male

DRUGS (1)
  1. CARBATROL [Suspect]
     Active Substance: CARBAMAZEPINE
     Indication: SEIZURE
     Route: 065

REACTIONS (19)
  - Pneumonia [Unknown]
  - Dysuria [Unknown]
  - Hypersomnia [Unknown]
  - Paraesthesia [Unknown]
  - Mood swings [Unknown]
  - Constipation [Unknown]
  - Dyspepsia [Unknown]
  - Pain in extremity [Unknown]
  - Tremor [Unknown]
  - Rash erythematous [Unknown]
  - Skin burning sensation [Unknown]
  - Pruritus [Unknown]
  - Muscle atrophy [Unknown]
  - Somnolence [Unknown]
  - Vision blurred [Unknown]
  - Feeling abnormal [Unknown]
  - Thinking abnormal [Unknown]
  - Visual impairment [Unknown]
  - Abdominal discomfort [Unknown]
